FAERS Safety Report 16502703 (Version 4)
Quarter: 2019Q3

REPORT INFORMATION
  Report Type: Spontaneous
  Country: CZ (occurrence: CZ)
  Receive Date: 20190701
  Receipt Date: 20190723
  Transmission Date: 20191004
  Serious: Yes (Other)
  Sender: FDA-Public Use
  Company Number: PHHY2019CZ149717

PATIENT
  Sex: Male
  Weight: 130 kg

DRUGS (2)
  1. CICLOSPORIN [Suspect]
     Active Substance: CYCLOSPORINE
     Dosage: 300 MG, QD
     Route: 048
  2. CICLOSPORIN [Suspect]
     Active Substance: CYCLOSPORINE
     Indication: PRODUCT USED FOR UNKNOWN INDICATION
     Dosage: 300 MG, UNK
     Route: 048
     Dates: start: 2018

REACTIONS (6)
  - Hyperuricaemia [Recovering/Resolving]
  - Paraesthesia [Recovering/Resolving]
  - Psoriasis [Recovering/Resolving]
  - Hypertension [Recovering/Resolving]
  - Psoriasis area severity index increased [Recovering/Resolving]
  - Paraesthesia oral [Recovering/Resolving]

NARRATIVE: CASE EVENT DATE: 201801
